FAERS Safety Report 20778704 (Version 5)
Quarter: 2022Q3

REPORT INFORMATION
  Report Type: Spontaneous
  Country: US (occurrence: US)
  Receive Date: 20220503
  Receipt Date: 20220829
  Transmission Date: 20221026
  Serious: Yes (Hospitalization)
  Sender: FDA-Public Use
  Company Number: US-PFIZER INC-202200626229

PATIENT
  Age: 75 Year
  Sex: Female
  Weight: 113.4 kg

DRUGS (2)
  1. IBRANCE [Suspect]
     Active Substance: PALBOCICLIB
     Indication: Bone cancer
     Dosage: 125MG, ONCE A DAY FOR 21 DAYS ON AND OFF 7 DAYS
  2. IBRANCE [Suspect]
     Active Substance: PALBOCICLIB
     Indication: Neoplasm malignant
     Dosage: 100 MG

REACTIONS (5)
  - Dyspnoea [Unknown]
  - White blood cell count decreased [Unknown]
  - Blood pressure abnormal [Unknown]
  - Off label use [Unknown]
  - Rash pruritic [Not Recovered/Not Resolved]

NARRATIVE: CASE EVENT DATE: 20220613
